FAERS Safety Report 5629416-2 (Version None)
Quarter: 2008Q1

REPORT INFORMATION
  Report Type: 
  Country: None (occurrence: None)
  Receive Date: 20080218
  Receipt Date: 20080212
  Transmission Date: 20080703
  Serious: Yes (Life-Threatening)
  Sender: FDA-Public Use
  Company Number: JP-BAYER-200810266BYL

PATIENT
  Age: 77 Year
  Sex: Female

DRUGS (1)
  1. CIPROXAN-I.V. [Suspect]
     Route: 041
     Dates: start: 20080204, end: 20080212

REACTIONS (2)
  - HAEMATEMESIS [None]
  - HAEMATURIA [None]
